FAERS Safety Report 20526732 (Version 1)
Quarter: 2022Q1

REPORT INFORMATION
  Report Type: Spontaneous
  Country: US (occurrence: None)
  Receive Date: 20220228
  Receipt Date: 20220228
  Transmission Date: 20220423
  Serious: Yes (Hospitalization)
  Sender: FDA-Public Use
  Company Number: None

PATIENT
  Sex: Male

DRUGS (7)
  1. MYCOPHENOLIC ACID [Suspect]
     Active Substance: MYCOPHENOLIC ACID
     Indication: Renal transplant
     Route: 048
     Dates: start: 20190119
  2. CINACALCET TAB [Concomitant]
  3. CINACALCET HYDROCHLORIDE [Concomitant]
     Active Substance: CINACALCET HYDROCHLORIDE
  4. ENVARSUS XR [Concomitant]
  5. ENVARSUS XR [Concomitant]
     Active Substance: TACROLIMUS
  6. ENVARSUS XR [Concomitant]
     Active Substance: TACROLIMUS
  7. MYCOPHENOLAT TAB [Concomitant]

REACTIONS (1)
  - Concussion [None]
